FAERS Safety Report 17468425 (Version 1)
Quarter: 2020Q1

REPORT INFORMATION
  Report Type: Spontaneous
  Country: RU (occurrence: RU)
  Receive Date: 20200227
  Receipt Date: 20200227
  Transmission Date: 20200409
  Serious: Yes (Other)
  Sender: FDA-Public Use
  Company Number: RU-BAYER-2020-030880

PATIENT
  Age: 50 Year
  Sex: Female

DRUGS (1)
  1. GADOVIST [Suspect]
     Active Substance: GADOBUTROL
     Dosage: 7.5 ML, ONCE
     Dates: start: 20200204, end: 20200204

REACTIONS (3)
  - Swelling of eyelid [Unknown]
  - Retinal fibrosis [Unknown]
  - Rash [None]

NARRATIVE: CASE EVENT DATE: 202002
